FAERS Safety Report 5195031-0 (Version None)
Quarter: 2006Q4

REPORT INFORMATION
  Report Type: 
  Country: None (occurrence: None)
  Receive Date: 20061229
  Receipt Date: 20061226
  Transmission Date: 20070319
  Serious: Yes (Hospitalization)
  Sender: FDA-Public Use
  Company Number: US-ABBOTT-06P-163-0354322-00

PATIENT
  Sex: Female
  Weight: 90.5 kg

DRUGS (17)
  1. HUMIRA [Suspect]
     Indication: RHEUMATOID ARTHRITIS
     Route: 058
     Dates: start: 20030101, end: 20061001
  2. NOVOLOG [Concomitant]
     Indication: DRUG USE FOR UNKNOWN INDICATION
  3. INSULIN GLARGINE [Concomitant]
     Indication: DRUG USE FOR UNKNOWN INDICATION
  4. COMBIVENT [Concomitant]
     Indication: DRUG USE FOR UNKNOWN INDICATION
  5. VITAMIN CAP [Concomitant]
     Indication: DRUG USE FOR UNKNOWN INDICATION
  6. DOCUSATE SODIUM [Concomitant]
     Indication: DRUG USE FOR UNKNOWN INDICATION
  7. OXYCODONE HCL [Concomitant]
     Indication: DRUG USE FOR UNKNOWN INDICATION
  8. POTASSIUM ACETATE [Concomitant]
     Indication: DRUG USE FOR UNKNOWN INDICATION
  9. FUROSEMIDE [Concomitant]
     Indication: DRUG USE FOR UNKNOWN INDICATION
  10. LORAZEPAM [Concomitant]
     Indication: DRUG USE FOR UNKNOWN INDICATION
  11. VENTOLIN [Concomitant]
     Indication: DRUG USE FOR UNKNOWN INDICATION
  12. DILTIAZEM HYDROCHLORIDE [Concomitant]
     Indication: DRUG USE FOR UNKNOWN INDICATION
  13. METOPROLOL SUCCINATE [Concomitant]
     Indication: DRUG USE FOR UNKNOWN INDICATION
  14. SERTRALINE HYDROCHLORIDE [Concomitant]
     Indication: DRUG USE FOR UNKNOWN INDICATION
  15. ANCERIL [Concomitant]
     Indication: DRUG USE FOR UNKNOWN INDICATION
  16. GARAPENTIN [Concomitant]
     Indication: DRUG USE FOR UNKNOWN INDICATION
  17. IBUPROFEN [Concomitant]
     Indication: DRUG USE FOR UNKNOWN INDICATION

REACTIONS (3)
  - FALL [None]
  - JOINT SWELLING [None]
  - OSTEOMYELITIS [None]
